FAERS Safety Report 8888928 (Version 2)
Quarter: 2012Q4

REPORT INFORMATION
  Report Type: Report from Study
  Country: TR (occurrence: TR)
  Receive Date: 20121106
  Receipt Date: 20121114
  Transmission Date: 20130627
  Serious: No
  Sender: FDA-Public Use
  Company Number: PHHY2012TR101217

PATIENT
  Age: 26 Year
  Sex: Female

DRUGS (3)
  1. FTY 720 [Suspect]
     Indication: RELAPSING-REMITTING MULTIPLE SCLEROSIS
     Dosage: 0.5 mg, QD
     Route: 048
     Dates: start: 20120719, end: 20121004
  2. AUGMENTIN [Concomitant]
     Indication: INFECTION
     Dosage: 2000 mg, 20 days
  3. ACC//ACETYLCYSTEINE [Concomitant]
     Indication: SECRETION DISCHARGE
     Dosage: 3 DF, QD 2 days

REACTIONS (2)
  - Skin lesion [Unknown]
  - Pneumonia [Recovered/Resolved]
